FAERS Safety Report 21866355 (Version 1)
Quarter: 2023Q1

REPORT INFORMATION
  Report Type: Spontaneous
  Country: GR (occurrence: GR)
  Receive Date: 20230116
  Receipt Date: 20230116
  Transmission Date: 20230417
  Serious: Yes (Death, Life-Threatening, Hospitalization, Other)
  Sender: FDA-Public Use
  Company Number: GR-PFIZER INC-202300013732

PATIENT
  Age: 73 Year
  Sex: Female

DRUGS (9)
  1. PIPERACILLIN SODIUM\TAZOBACTAM SODIUM [Suspect]
     Active Substance: PIPERACILLIN SODIUM\TAZOBACTAM SODIUM
     Indication: Pneumonia bacterial
     Dosage: UNK
  2. LINEZOLID [Suspect]
     Active Substance: LINEZOLID
     Indication: Pneumonia bacterial
     Dosage: UNK
  3. VORICONAZOLE [Suspect]
     Active Substance: VORICONAZOLE
     Indication: Pneumonia bacterial
     Dosage: UNK
  4. MEROPENEM [Suspect]
     Active Substance: MEROPENEM
     Indication: Pneumonia bacterial
     Dosage: UNK
  5. METHYLPREDNISOLONE [Suspect]
     Active Substance: METHYLPREDNISOLONE
     Indication: Immunomodulatory therapy
     Dosage: UNK
  6. AMIKACIN [Suspect]
     Active Substance: AMIKACIN
     Indication: Pneumonia bacterial
     Dosage: UNK
  7. SULFAMETHOXAZOLE\TRIMETHOPRIM [Suspect]
     Active Substance: SULFAMETHOXAZOLE\TRIMETHOPRIM
     Indication: Pneumonia bacterial
     Dosage: UNK
  8. CEFTRIAXONE [Suspect]
     Active Substance: CEFTRIAXONE
     Indication: Anti-infective therapy
     Dosage: UNK
  9. DEXAMETHASONE [Suspect]
     Active Substance: DEXAMETHASONE
     Indication: Immunomodulatory therapy
     Dosage: UNK

REACTIONS (3)
  - Drug ineffective [Fatal]
  - Acute respiratory distress syndrome [Fatal]
  - Sepsis [Fatal]
